FAERS Safety Report 5810466-8 (Version None)
Quarter: 2008Q3

REPORT INFORMATION
  Report Type: 
  Country: None (occurrence: None)
  Receive Date: 20080715
  Receipt Date: 20080709
  Transmission Date: 20090109
  Serious: Yes (Other)
  Sender: FDA-Public Use
  Company Number: US-PFIZER INC-2008050802

PATIENT
  Age: 56 Year
  Sex: Male

DRUGS (2)
  1. XALATAN [Suspect]
  2. TRAVATAN [Concomitant]

REACTIONS (3)
  - CATARACT [None]
  - RETINAL DEGENERATION [None]
  - RETINAL DETACHMENT [None]
